FAERS Safety Report 7000900-2 (Version None)
Quarter: 2010Q3

REPORT INFORMATION
  Report Type: 
  Country: None (occurrence: None)
  Receive Date: 20100920
  Receipt Date: 20100909
  Transmission Date: 20110219
  Serious: Yes (Hospitalization)
  Sender: FDA-Public Use
  Company Number: PHHY2010FR36721

PATIENT
  Sex: Male
  Weight: 87 kg

DRUGS (7)
  1. RASILEZ [Suspect]
     Indication: HYPERTENSION
     Dosage: 150 MG ONCE PER DAY
     Dates: start: 20091211, end: 20100227
  2. PRAVASTATIN [Concomitant]
     Indication: HYPERCHOLESTEROLAEMIA
     Dosage: 40 MG, UNK
     Dates: start: 20060101
  3. NULYTELY [Concomitant]
     Indication: CONSTIPATION
     Dosage: UNK
     Dates: start: 20010101
  4. ZANIDIP [Concomitant]
     Indication: HYPERTENSION
     Dosage: 10 MG, UNK
     Dates: start: 20060101
  5. ZANIDIP [Concomitant]
     Dosage: 20MG
  6. PERINDOPRIL ERBUMINE [Concomitant]
     Dosage: 4 MG, UNK
  7. INIPOMP [Concomitant]
     Indication: ABDOMINAL PAIN UPPER
     Dosage: 20 MG, UNK

REACTIONS (2)
  - GINGIVITIS [None]
  - IDIOPATHIC THROMBOCYTOPENIC PURPURA [None]
